FAERS Safety Report 8880719 (Version 1)
Quarter: 2012Q4

REPORT INFORMATION
  Report Type: 
  Country: US (occurrence: US)
  Receive Date: 20121101
  Receipt Date: 20121101
  Transmission Date: 20130627
  Serious: Yes (Hospitalization)
  Sender: FDA-Public Use
  Company Number: US-GLAXOSMITHKLINE-A0998824A

PATIENT
  Age: 64 Year
  Sex: Female

DRUGS (4)
  1. LOVAZA [Suspect]
     Indication: BLOOD TRIGLYCERIDES INCREASED
     Dosage: 1CAP Three times per day
     Route: 048
     Dates: start: 2010, end: 20121025
  2. ALLEGRA [Concomitant]
  3. VAGIFEM [Concomitant]
  4. CLOBETASOL [Concomitant]

REACTIONS (5)
  - Cystitis noninfective [Not Recovered/Not Resolved]
  - Blood urine present [Not Recovered/Not Resolved]
  - Dehydration [Not Recovered/Not Resolved]
  - Bladder discomfort [Not Recovered/Not Resolved]
  - Tinnitus [Not Recovered/Not Resolved]
